FAERS Safety Report 8087299-8 (Version None)
Quarter: 2012Q1

REPORT INFORMATION
  Report Type: 
  Country: None (occurrence: None)
  Receive Date: 20120128
  Receipt Date: 20110516
  Transmission Date: 20120608
  Serious: No
  Sender: FDA-Public Use
  Company Number: US-ABBOTT-11P-163-0726061-00

PATIENT
  Age: 22 Year
  Sex: Female

DRUGS (4)
  1. ALAVERT [Concomitant]
     Indication: PRURITUS
     Dosage: AS NEEDED
  2. HUMIRA [Suspect]
     Indication: ANKYLOSING SPONDYLITIS
     Dates: start: 20100605, end: 20110416
  3. SEASONIQUE [Concomitant]
     Indication: CONTRACEPTION
     Dosage: DAILY
  4. HUMIRA [Suspect]
     Dates: start: 20110508

REACTIONS (4)
  - PHARYNGEAL OEDEMA [None]
  - TOOTHACHE [None]
  - THROAT TIGHTNESS [None]
  - LYMPHADENOPATHY [None]
